FAERS Safety Report 5878680-3 (Version None)
Quarter: 2008Q3

REPORT INFORMATION
  Report Type: 
  Country: None (occurrence: None)
  Receive Date: 20080912
  Receipt Date: 20080828
  Transmission Date: 20090109
  Serious: Yes (Death, Other)
  Sender: FDA-Public Use
  Company Number: DE-BAYER-200815214GPV

PATIENT

DRUGS (4)
  1. FLUDARABINE PHOSPHATE [Suspect]
     Indication: BONE MARROW CONDITIONING REGIMEN
  2. MELPHALAN [Suspect]
     Indication: BONE MARROW CONDITIONING REGIMEN
  3. THIOTEPA [Suspect]
     Indication: BONE MARROW CONDITIONING REGIMEN
  4. ORTHOCLONE OKT3 [Suspect]
     Indication: BONE MARROW CONDITIONING REGIMEN

REACTIONS (12)
  - ALANINE AMINOTRANSFERASE INCREASED [None]
  - ASPARTATE AMINOTRANSFERASE INCREASED [None]
  - BLOOD BILIRUBIN INCREASED [None]
  - BLOOD CREATININE ABNORMAL [None]
  - CARDIOMYOPATHY [None]
  - CHRONIC GRAFT VERSUS HOST DISEASE [None]
  - DIARRHOEA [None]
  - HYPOXIA [None]
  - INFECTION [None]
  - PNEUMONITIS [None]
  - SKIN TOXICITY [None]
  - STOMATITIS [None]
